FAERS Safety Report 25179463 (Version 1)
Quarter: 2025Q2

REPORT INFORMATION
  Report Type: Spontaneous
  Country: US (occurrence: None)
  Receive Date: 20250408
  Receipt Date: 20250408
  Transmission Date: 20250717
  Serious: Yes (Other)
  Sender: FDA-CTU
  Company Number: None

PATIENT
  Age: 46 Year
  Sex: Male
  Weight: 118.8 kg

DRUGS (1)
  1. NAFCILLIN [Suspect]
     Active Substance: NAFCILLIN SODIUM
     Indication: Subcutaneous abscess
     Route: 042
     Dates: start: 20250329, end: 20250407

REACTIONS (1)
  - Rash [None]

NARRATIVE: CASE EVENT DATE: 20250408
